FAERS Safety Report 16855286 (Version 3)
Quarter: 2019Q4

REPORT INFORMATION
  Report Type: Spontaneous
  Country: US (occurrence: US)
  Receive Date: 20190926
  Receipt Date: 20191209
  Transmission Date: 20200122
  Serious: Yes (Other)
  Sender: FDA-Public Use
  Company Number: US-LEXICON PHARMACEUTICALS, INC-19-1606-00891

PATIENT
  Sex: Female

DRUGS (3)
  1. TELOTRISTAT ETHYL [Suspect]
     Active Substance: TELOTRISTAT ETHYL
     Indication: CARCINOID SYNDROME
     Route: 048
     Dates: start: 20190314
  2. METOPROLOL. [Concomitant]
     Active Substance: METOPROLOL
  3. LANREOTIDE [Concomitant]
     Active Substance: LANREOTIDE

REACTIONS (12)
  - Constipation [Not Recovered/Not Resolved]
  - Abdominal pain upper [Not Recovered/Not Resolved]
  - Eructation [Not Recovered/Not Resolved]
  - Flatulence [Not Recovered/Not Resolved]
  - Flushing [Not Recovered/Not Resolved]
  - Dyspnoea [Recovered/Resolved]
  - Dizziness [Recovered/Resolved]
  - Gallbladder disorder [Unknown]
  - Arthralgia [Not Recovered/Not Resolved]
  - Hyperventilation [Recovered/Resolved]
  - Gallbladder operation [Unknown]
  - Abdominal discomfort [Not Recovered/Not Resolved]
